FAERS Safety Report 5125935-6 (Version None)
Quarter: 2006Q3

REPORT INFORMATION
  Report Type: 
  Country: None (occurrence: None)
  Receive Date: 20060818
  Receipt Date: 20050906
  Transmission Date: 20061208
  Serious: No
  Sender: FDA-Public Use
  Company Number: 0507032

PATIENT
  Sex: Male
  Weight: 11 kg

DRUGS (8)
  1. TROPHAMINE 10% [Suspect]
     Indication: INTESTINAL PERFORATION
  2. TRACE ELEMENT-ZINC CHLORIDE [Suspect]
     Indication: INTESTINAL PERFORATION
  3. MULTI-VITAMIN [Suspect]
     Indication: INTESTINAL PERFORATION
     Dosage: IV
     Route: 042
     Dates: start: 20050714
  4. ELECTROLYTES - VARIOUS MANUFACTURERS [Suspect]
     Indication: INTESTINAL PERFORATION
     Dosage: IV
     Route: 042
     Dates: start: 20050714
  5. ONDANSETRON [Concomitant]
  6. MIDAZOLAM [Concomitant]
  7. BUPIVACAINE [Concomitant]
  8. .. [Concomitant]

REACTIONS (1)
  - ANAPHYLACTIC REACTION [None]
